FAERS Safety Report 23698871 (Version 3)
Quarter: 2024Q4

REPORT INFORMATION
  Report Type: Spontaneous
  Country: US (occurrence: US)
  Receive Date: 20240402
  Receipt Date: 20241110
  Transmission Date: 20250115
  Serious: No
  Sender: SANOFI AVENTIS
  Company Number: US-SA-SAC20240329000986

PATIENT
  Age: 67 Year
  Sex: Female

DRUGS (2)
  1. KEVZARA [Suspect]
     Active Substance: SARILUMAB
     Indication: Rheumatoid factor
     Dosage: 150 MG, QOW
     Route: 058
     Dates: start: 202310
  2. KEVZARA [Suspect]
     Active Substance: SARILUMAB
     Dosage: 200 MG, QOW
     Route: 058
     Dates: start: 202406

REACTIONS (5)
  - Pain in extremity [Unknown]
  - Condition aggravated [Unknown]
  - Blood bilirubin increased [Unknown]
  - Globulins decreased [Unknown]
  - Peripheral swelling [Unknown]
